FAERS Safety Report 9513022 (Version 1)
Quarter: 2013Q3

REPORT INFORMATION
  Report Type: Spontaneous
  Country: AU (occurrence: AU)
  Receive Date: 20130910
  Receipt Date: 20130910
  Transmission Date: 20140515
  Serious: Yes (Other)
  Sender: FDA-Public Use
  Company Number: AU-PFIZER INC-2013254706

PATIENT
  Age: 60 Year
  Sex: Male

DRUGS (1)
  1. XALATAN [Suspect]
     Dosage: IN BOTH EYES, UNK
     Route: 047

REACTIONS (4)
  - Retinal cyst [Unknown]
  - Retinal oedema [Unknown]
  - Eye disorder [Unknown]
  - Visual acuity reduced [Unknown]
